FAERS Safety Report 16961954 (Version 1)
Quarter: 2019Q4

REPORT INFORMATION
  Report Type: Spontaneous
  Country: US (occurrence: US)
  Receive Date: 20191025
  Receipt Date: 20191025
  Transmission Date: 20200122
  Serious: No
  Sender: FDA-Public Use
  Company Number: US-VERTEX PHARMACEUTICALS-2019-009580

PATIENT
  Age: 7 Year
  Sex: Male

DRUGS (9)
  1. RANITIDINE. [Concomitant]
     Active Substance: RANITIDINE
  2. PULMOZYME [Concomitant]
     Active Substance: DORNASE ALFA
  3. QVAR [Concomitant]
     Active Substance: BECLOMETHASONE DIPROPIONATE
  4. PROAIR HFA [Concomitant]
     Active Substance: ALBUTEROL SULFATE
  5. CREON [Concomitant]
     Active Substance: PANCRELIPASE AMYLASE\PANCRELIPASE LIPASE\PANCRELIPASE PROTEASE
  6. PREVACID [Concomitant]
     Active Substance: LANSOPRAZOLE
  7. CULTURELLE KIDS PACKETS [Concomitant]
  8. HYPERSAL [Concomitant]
     Active Substance: SODIUM CHLORIDE
  9. SYMDEKO [Suspect]
     Active Substance: IVACAFTOR\TEZACAFTOR
     Indication: CYSTIC FIBROSIS
     Dosage: BID
     Route: 048
     Dates: start: 20190924

REACTIONS (4)
  - Abdominal pain upper [Unknown]
  - Rash [Unknown]
  - Headache [Unknown]
  - Nausea [Unknown]

NARRATIVE: CASE EVENT DATE: 201909
